FAERS Safety Report 8511245-3 (Version None)
Quarter: 2012Q2

REPORT INFORMATION
  Report Type: 
  Country: None (occurrence: None)
  Receive Date: 20120629
  Receipt Date: 20120619
  Transmission Date: 20120825
  Serious: Yes (Death)
  Sender: FDA-Public Use
  Company Number: DSA_58060_2012

PATIENT

DRUGS (6)
  1. LEUCOVORIN CALCIUM [Suspect]
     Indication: COLORECTAL CANCER METASTATIC
     Dosage: (200 MG/M2 INTRAVENOUS (NOT OTHERWISE SPECIFIED))
     Route: 042
  2. IRINOTECAN HCL [Suspect]
     Indication: COLORECTAL CANCER METASTATIC
     Dosage: (180 MG/M2 EVERY OTHER WEEK INTRAVENOUS (NOT OTHERWISE SPECIFIED))
     Route: 042
  3. CETUXIMAB (CETUXIMAB) [Suspect]
     Indication: COLORECTAL CANCER METASTATIC
     Dosage: (400 MG/M2 ONCE INTRAVENOUS (NOT OTHERWISE SPECIFIED)}, {250 MG/M2 WEEKLY)
     Route: 042
  4. OXALIPLATIN [Suspect]
     Indication: COLORECTAL CANCER METASTATIC
     Dosage: (85 MG/M2 INTRAVENOUS (NOT OTHERWISE SPECIFIED))
     Route: 042
  5. ANTIHISTAMINES [Concomitant]
  6. FLUOROURACIL [Suspect]
     Indication: COLORECTAL CANCER METASTATIC
     Dosage: (400 MG ONCE INTRAVENOUS BOLUS), (2400 MG/M2 EVERY OTHER WEEK)
     Route: 040

REACTIONS (1)
  - NEUTROPENIC SEPSIS [None]
